FAERS Safety Report 7919871-7 (Version None)
Quarter: 2011Q4

REPORT INFORMATION
  Report Type: 
  Country: None (occurrence: None)
  Receive Date: 20111115
  Receipt Date: 20111101
  Transmission Date: 20120403
  Serious: Yes (Hospitalization, Other)
  Sender: FDA-Public Use
  Company Number: IMP_05450_2011

PATIENT
  Sex: Male

DRUGS (3)
  1. RAMIPRIL [Suspect]
     Indication: PRODUCT USED FOR UNKNOWN INDICATION
     Dosage: (35 MG, DF)
  2. ALCOHOL (ALCOHOL) [Suspect]
     Indication: PRODUCT USED FOR UNKNOWN INDICATION
     Dosage: (500 ML OVER 4 HOURS)
  3. METFORMIN HCL [Suspect]
     Indication: PRODUCT USED FOR UNKNOWN INDICATION
     Dosage: (56 G, DF)

REACTIONS (18)
  - PULMONARY OEDEMA [None]
  - SENSORY LOSS [None]
  - LACTIC ACIDOSIS [None]
  - ABDOMINAL PAIN LOWER [None]
  - DEHYDRATION [None]
  - TACHYPNOEA [None]
  - HYPOTENSION [None]
  - METABOLIC ACIDOSIS [None]
  - APNOEA [None]
  - PARTIAL SEIZURES [None]
  - COMPARTMENT SYNDROME [None]
  - OVERDOSE [None]
  - DIARRHOEA [None]
  - PALLOR [None]
  - RHABDOMYOLYSIS [None]
  - CONTINUOUS HAEMODIAFILTRATION [None]
  - CARDIAC ARREST [None]
  - PAIN IN EXTREMITY [None]
